FAERS Safety Report 6963610-3 (Version None)
Quarter: 2010Q3

REPORT INFORMATION
  Report Type: 
  Country: None (occurrence: None)
  Receive Date: 20100902
  Receipt Date: 20100820
  Transmission Date: 20110219
  Serious: Yes (Other)
  Sender: FDA-Public Use
  Company Number: US-ELI_LILLY_AND_COMPANY-US201007003669

PATIENT
  Age: 81 Year
  Sex: Female
  Weight: 73.247 kg

DRUGS (8)
  1. FORTEO [Suspect]
     Indication: OSTEOPOROSIS
     Dosage: 20 UG, DAILY (1/D)
     Route: 058
     Dates: start: 20090313
  2. HUMALOG [Concomitant]
  3. LANTUS [Concomitant]
  4. LOPRESSOR [Concomitant]
     Indication: HYPERTENSION
     Dosage: 100 MG, DAILY (1/D)
     Dates: start: 20040618
  5. SYNTHROID [Concomitant]
     Indication: HYPOTHYROIDISM
     Dosage: 0.05 MG, DAILY (1/D)
     Dates: start: 20030609
  6. CARDURA [Concomitant]
     Indication: HYPERTENSION
     Dosage: 4 MG, EACH EVENING
     Dates: start: 20071008
  7. CALCIUM [Concomitant]
     Indication: OSTEOPOROSIS
     Dosage: 600 MG, 2/D
  8. MULTI-VITAMIN [Concomitant]
     Dosage: UNK, DAILY (1/D)

REACTIONS (2)
  - FALL [None]
  - PELVIC FRACTURE [None]
